FAERS Safety Report 9960150 (Version 1)
Quarter: 2014Q1

REPORT INFORMATION
  Report Type: Spontaneous
  Country: US (occurrence: None)
  Receive Date: 20140228
  Receipt Date: 20140228
  Transmission Date: 20141002
  Serious: Yes (Hospitalization)
  Sender: FDA-Public Use
  Company Number: UTC-045304

PATIENT
  Age: 47 Year
  Sex: Female

DRUGS (4)
  1. REMODULIN ( 5 MILLIGRAM/MILLILITERS, INJECTION FOR INFUSION) (TREPROSTINIL SODIUM) [Suspect]
     Indication: PULMONARY ARTERIAL HYPERTENSION
     Dosage: (0.1 UG/KG, 1 IN 1 MIN)
     Route: 058
     Dates: start: 20080523
  2. ADCIRCA (TADALAFIL) (UNKNOWN) [Concomitant]
  3. TRACLEER (BOSENTAN) (UNKNOWN) [Concomitant]
  4. COUMADIN (WARFARIN SODIUM) (UNKNOWN) [Concomitant]

REACTIONS (3)
  - Convulsion [None]
  - Drug dose omission [None]
  - Medical device complication [None]
